FAERS Safety Report 5922542-X (Version None)
Quarter: 2008Q4

REPORT INFORMATION
  Report Type: 
  Country: None (occurrence: None)
  Receive Date: 20081017
  Receipt Date: 20081009
  Transmission Date: 20090506
  Serious: Yes (Other)
  Sender: FDA-Public Use
  Company Number: PHEH2008US09099

PATIENT
  Sex: Female

DRUGS (1)
  1. PROLEUKIN [Suspect]

REACTIONS (4)
  - ACNE [None]
  - ERYTHEMA [None]
  - METASTATIC MALIGNANT MELANOMA [None]
  - PAIN [None]
